FAERS Safety Report 7830877-9 (Version None)
Quarter: 2011Q4

REPORT INFORMATION
  Report Type: 
  Country: None (occurrence: None)
  Receive Date: 20111021
  Receipt Date: 20111018
  Transmission Date: 20120403
  Serious: Yes (Hospitalization, Other)
  Sender: FDA-Public Use
  Company Number: DE-ABBOTT-11P-062-0718858-00

PATIENT
  Sex: Female
  Weight: 60 kg

DRUGS (7)
  1. CALCIUM D3 [Concomitant]
     Indication: PRODUCT USED FOR UNKNOWN INDICATION
     Dosage: OPD
  2. BUDESONIDE [Concomitant]
     Indication: PRODUCT USED FOR UNKNOWN INDICATION
     Dosage: LOCAL/ORAL
  3. ANTIBIOTICS [Concomitant]
     Indication: PRODUCT USED FOR UNKNOWN INDICATION
  4. 5-ASA/SULFASALAZIN [Concomitant]
     Indication: PRODUCT USED FOR UNKNOWN INDICATION
  5. HUMIRA [Suspect]
     Indication: CROHN'S DISEASE
     Route: 058
     Dates: start: 20101007, end: 20110916
  6. PREDNISOLONE [Concomitant]
     Indication: PRODUCT USED FOR UNKNOWN INDICATION
     Dosage: OPD
  7. NORDETTE-28 [Concomitant]
     Indication: PRODUCT USED FOR UNKNOWN INDICATION
     Dosage: AT NIGHT

REACTIONS (17)
  - FATIGUE [None]
  - DECREASED APPETITE [None]
  - CARDIAC MURMUR [None]
  - ASTHENIA [None]
  - NAUSEA [None]
  - CROHN'S DISEASE [None]
  - ANAL ABSCESS [None]
  - VOMITING [None]
  - PYREXIA [None]
  - ABDOMINAL PAIN [None]
  - PAIN IN EXTREMITY [None]
  - WEIGHT DECREASED [None]
  - CHILLS [None]
  - UNEVALUABLE EVENT [None]
  - ANAL FISSURE [None]
  - BARTHOLIN'S ABSCESS [None]
  - DIARRHOEA HAEMORRHAGIC [None]
